FAERS Safety Report 4932579-5 (Version None)
Quarter: 2006Q1

REPORT INFORMATION
  Report Type: 
  Country: None (occurrence: None)
  Receive Date: 20060303
  Receipt Date: 20050624
  Transmission Date: 20060701
  Serious: Yes (Hospitalization, Disabling)
  Sender: FDA-Public Use
  Company Number: US-MERCK-0506USA03780

PATIENT
  Age: 54 Year
  Sex: Male
  Weight: 76 kg

DRUGS (4)
  1. VIOXX [Suspect]
     Indication: OSTEOARTHRITIS
     Route: 048
     Dates: start: 19990101, end: 20031101
  2. VIOXX [Suspect]
     Route: 048
     Dates: start: 19990101, end: 20031101
  3. XANAX [Concomitant]
     Indication: ANXIETY
     Route: 065
  4. XANAX [Concomitant]
     Indication: DEPRESSION
     Route: 065

REACTIONS (3)
  - ANGINA PECTORIS [None]
  - CARDIAC DISORDER [None]
  - RECTAL HAEMORRHAGE [None]
